FAERS Safety Report 8529444-3 (Version None)
Quarter: 2012Q3

REPORT INFORMATION
  Report Type: 
  Country: None (occurrence: None)
  Receive Date: 20120723
  Receipt Date: 20120712
  Transmission Date: 20120928
  Serious: Yes (Hospitalization)
  Sender: FDA-Public Use
  Company Number: US-BAYER-2012-070676

PATIENT
  Age: 43 Year
  Sex: Female

DRUGS (25)
  1. VENLAFAXINE [Concomitant]
     Dosage: 150 MG, QD
     Route: 048
     Dates: start: 20120228
  2. PERCOCET [Concomitant]
  3. EFFEXOR XR [Concomitant]
     Indication: DEPRESSION
     Dosage: 150 MG, QD
     Dates: start: 20080101
  4. YAZ [Suspect]
     Indication: PREMENSTRUAL SYNDROME
     Dosage: ONE, QD
     Route: 048
  5. ZITHROMAX [Concomitant]
     Dosage: 250 MG, TOTAL OF 1
     Route: 048
     Dates: start: 20120406
  6. VALIUM [Concomitant]
     Dosage: 2 MG, PRN DAILY
  7. FLONASE [Concomitant]
     Dosage: 2 PUFF(S), QD, 50 MCG/ACTUATION
     Route: 045
     Dates: start: 20120228
  8. CEPHALEXIN [Concomitant]
     Dosage: 500 MG, TID
     Route: 048
     Dates: start: 20120329
  9. CEPHALEXIN [Concomitant]
     Dosage: 500 MG, TID
     Dates: start: 20120319
  10. ACETAMINOPHEN AND OXYCODONE HCL [Concomitant]
     Dosage: 5-325 MG ONE OR TWO TABLETS EVERY 4 TO 6 HOURS AS NEEDED
     Dates: start: 20120406
  11. MIRALAX [Concomitant]
  12. IBUPROFEN [Concomitant]
  13. ZITHROMAX [Concomitant]
     Dosage: 250 MG, TOTAL OF 1
     Route: 048
     Dates: start: 20120228
  14. CEPHALEXIN [Concomitant]
     Dosage: 500 MG, TID
     Route: 048
     Dates: start: 20120228
  15. MULTI-VITAMIN [Concomitant]
     Dosage: UNK
     Dates: start: 20120406
  16. ACETAMINOPHEN AND OXYCODONE HCL [Concomitant]
     Dosage: 5-325 MG ONE OR TWO TABLETS EVERY 4 TO 6 HOURS AS NEEDED
     Dates: start: 20120329
  17. DIAZEPAM [Concomitant]
     Dosage: 5 MG, ONE TABLET EVERY 6 HOURS AS NEEDED
     Route: 048
  18. ACETAMINOPHEN AND OXYCODONE HCL [Concomitant]
     Dosage: 5-325 MG ONE OR TWO TABLETS EVERY 4 TO 6 HOURS AS NEEDED
     Route: 048
     Dates: start: 20120319
  19. KEFLEX [Concomitant]
  20. COLACE [Concomitant]
     Dosage: UNK
  21. FLONASE [Concomitant]
     Dosage: 50 MCG/ACTUATION 2 PUFF(S), QD
     Route: 045
     Dates: start: 20120406
  22. YAZ [Suspect]
     Indication: ENDOMETRIOSIS
  23. DROSPIRENONE AND ETHINYL ESTRADIOL [Suspect]
     Dosage: UNK UNK, QD
     Route: 048
  24. VENLAFAXINE [Concomitant]
     Dosage: 150 MG, QD
     Route: 048
     Dates: start: 20120406
  25. TYLENOL [Concomitant]

REACTIONS (2)
  - PULMONARY EMBOLISM [None]
  - DEEP VEIN THROMBOSIS [None]
